FAERS Safety Report 12713339 (Version 1)
Quarter: 2016Q3

REPORT INFORMATION
  Report Type: Spontaneous
  Country: JP (occurrence: JP)
  Receive Date: 20160902
  Receipt Date: 20160902
  Transmission Date: 20161109
  Serious: Yes (Other)
  Sender: FDA-Public Use
  Company Number: JP-ASTRAZENECA-2016SE92706

PATIENT
  Age: 22119 Day
  Sex: Male
  Weight: 72 kg

DRUGS (10)
  1. NEXIUM [Concomitant]
     Active Substance: ESOMEPRAZOLE MAGNESIUM
  2. NITOROL [Concomitant]
     Active Substance: ISOSORBIDE DINITRATE
  3. FORXIGA [Concomitant]
     Active Substance: DAPAGLIFLOZIN
  4. SEROQUEL [Suspect]
     Active Substance: QUETIAPINE FUMARATE
     Indication: PRODUCT USED FOR UNKNOWN INDICATION
     Dosage: UNKNOWN DOSE AND FREQUENCY
     Route: 048
  5. SEROQUEL [Suspect]
     Active Substance: QUETIAPINE FUMARATE
     Indication: PRODUCT USED FOR UNKNOWN INDICATION
     Route: 048
     Dates: start: 20150827
  6. AIMIX [Concomitant]
     Active Substance: AMLODIPINE BESYLATE\IRBESARTAN
  7. CALONAL [Concomitant]
     Active Substance: ACETAMINOPHEN
  8. DIAZEPAM. [Concomitant]
     Active Substance: DIAZEPAM
  9. ARTIST [Concomitant]
     Active Substance: CARVEDILOL
  10. LAVIN [Concomitant]

REACTIONS (3)
  - Diabetes mellitus [Unknown]
  - Hyperglycaemia [Unknown]
  - Non-alcoholic steatohepatitis [Unknown]

NARRATIVE: CASE EVENT DATE: 20160609
